FAERS Safety Report 6295299-3 (Version None)
Quarter: 2009Q3

REPORT INFORMATION
  Report Type: 
  Country: None (occurrence: None)
  Receive Date: 20090803
  Receipt Date: 20090629
  Transmission Date: 20100115
  Serious: No
  Sender: FDA-Public Use
  Company Number: US-BAYER-200926103NA

PATIENT
  Age: 52 Year
  Sex: Male
  Weight: 122 kg

DRUGS (4)
  1. ULTRAVIST 370 [Suspect]
     Indication: COMPUTERISED TOMOGRAM THORAX
     Dosage: TOTAL DAILY DOSE: 120 ML  UNIT DOSE: 500 ML
     Route: 042
     Dates: start: 20090629, end: 20090629
  2. ALLEGRA [Concomitant]
  3. AVALIDE [Concomitant]
  4. VICODIN [Concomitant]

REACTIONS (3)
  - DYSPNOEA [None]
  - NASAL CONGESTION [None]
  - SALIVARY GLAND ENLARGEMENT [None]
